FAERS Safety Report 19995071 (Version 6)
Quarter: 2022Q3

REPORT INFORMATION
  Report Type: Spontaneous
  Country: JP (occurrence: JP)
  Receive Date: 20211025
  Receipt Date: 20220812
  Transmission Date: 20221027
  Serious: Yes (Hospitalization, Other)
  Sender: FDA-Public Use
  Company Number: JP-GLAXOSMITHKLINE-JP2021JPN216787

PATIENT

DRUGS (2)
  1. NUCALA [Suspect]
     Active Substance: MEPOLIZUMAB
     Indication: Eosinophilic granulomatosis with polyangiitis
     Dosage: 300 MG, ONCE EVERY FOUR WEEKS
     Dates: start: 201806, end: 202111
  2. NUCALA [Suspect]
     Active Substance: MEPOLIZUMAB
     Dosage: UNK

REACTIONS (6)
  - Metastases to liver [Unknown]
  - Colon cancer [Unknown]
  - Metastases to lymph nodes [Unknown]
  - Abdominal pain upper [Unknown]
  - Eosinophil count increased [Unknown]
  - Asthma [Unknown]

NARRATIVE: CASE EVENT DATE: 20210101
